FAERS Safety Report 5127047-4 (Version None)
Quarter: 2006Q4

REPORT INFORMATION
  Report Type: 
  Country: None (occurrence: None)
  Receive Date: 20061013
  Receipt Date: 20061005
  Transmission Date: 20070319
  Serious: Yes (Other)
  Sender: FDA-Public Use
  Company Number: JP-MERCK-0610USA06661

PATIENT
  Age: 85 Year
  Sex: Female

DRUGS (4)
  1. FOSAMAX [Suspect]
     Indication: OSTEOPOROSIS
     Route: 048
     Dates: start: 20060929, end: 20060929
  2. NU-LOTAN [Concomitant]
     Indication: HYPERTENSION
     Route: 048
  3. EVISTA [Concomitant]
     Route: 048
     Dates: end: 20060928
  4. ELCITONIN [Concomitant]
     Route: 051
     Dates: end: 20060928

REACTIONS (2)
  - DIZZINESS [None]
  - LOSS OF CONSCIOUSNESS [None]
